FAERS Safety Report 24987948 (Version 1)
Quarter: 2025Q1

REPORT INFORMATION
  Report Type: Spontaneous
  Country: JP (occurrence: JP)
  Receive Date: 20250219
  Receipt Date: 20250219
  Transmission Date: 20250408
  Serious: Yes (Hospitalization, Other)
  Sender: ASTELLAS
  Company Number: JP-ASTELLAS-2025-AER-009083

PATIENT
  Age: 44 Year
  Sex: Male
  Weight: 64 kg

DRUGS (13)
  1. XOSPATA [Suspect]
     Active Substance: GILTERITINIB
     Indication: Acute myeloid leukaemia
     Route: 048
     Dates: start: 20241111, end: 20241121
  2. BUSULFAN [Suspect]
     Active Substance: BUSULFAN
     Indication: Bone marrow conditioning regimen
     Route: 065
     Dates: start: 20241007
  3. CYCLOPHOSPHAMIDE [Suspect]
     Active Substance: CYCLOPHOSPHAMIDE
     Indication: Prophylaxis against graft versus host disease
     Route: 065
     Dates: start: 20241007
  4. URSODEOXYCHOLIC ACID (100) [Concomitant]
     Indication: Product used for unknown indication
     Route: 048
  5. MIYA-BM [Concomitant]
     Active Substance: CLOSTRIDIUM BUTYRICUM SPORES STRAIN M-55
     Indication: Product used for unknown indication
     Route: 048
  6. LANSOPRAZOLE OD (15) [Concomitant]
     Indication: Product used for unknown indication
     Route: 048
  7. NOXAFIL (100) [Concomitant]
     Indication: Product used for unknown indication
     Route: 048
  8. CARBOCISTEINE tablet (250) [Concomitant]
     Indication: Product used for unknown indication
     Route: 048
  9. NEORAL (25) [Concomitant]
     Indication: Product used for unknown indication
     Route: 048
  10. MEDICON tablet (15) [Concomitant]
     Indication: Product used for unknown indication
     Route: 048
  11. MEROPENEM (0.5) [Concomitant]
     Indication: Product used for unknown indication
     Route: 042
  12. VANCOMYCINE (0.5) [Concomitant]
     Indication: Product used for unknown indication
     Route: 042
  13. KN NO.1 [Concomitant]
     Indication: Product used for unknown indication
     Route: 042

REACTIONS (1)
  - Pneumonia cytomegaloviral [Recovered/Resolved]

NARRATIVE: CASE EVENT DATE: 20241201
